FAERS Safety Report 19135231 (Version 2)
Quarter: 2021Q2

REPORT INFORMATION
  Report Type: Spontaneous
  Country: DE (occurrence: DE)
  Receive Date: 20210414
  Receipt Date: 20210421
  Transmission Date: 20210717
  Serious: No
  Sender: FDA-Public Use
  Company Number: DE-GILEAD-2021-0525132

PATIENT
  Age: 62 Year
  Sex: Female
  Weight: 65 kg

DRUGS (9)
  1. PRAMIPEXOLE. [Concomitant]
     Active Substance: PRAMIPEXOLE
     Indication: PARKINSON^S DISEASE
  2. RANOLAZINE. [Suspect]
     Active Substance: RANOLAZINE
     Indication: ANGINA PECTORIS
     Dosage: 375 MG, QD
     Route: 065
  3. MOCLOBEMIDE [Interacting]
     Active Substance: MOCLOBEMIDE
     Indication: DEPRESSION
     Dosage: 450 MG, QD
     Route: 065
  4. LEVOTHYROXINE. [Concomitant]
     Active Substance: LEVOTHYROXINE
     Indication: HYPOTHYROIDISM
  5. RANOLAZINE. [Suspect]
     Active Substance: RANOLAZINE
     Indication: HYPERTENSION
  6. RASAGILINE. [Interacting]
     Active Substance: RASAGILINE
     Indication: PARKINSON^S DISEASE
     Dosage: 1 MG, QD
     Route: 065
  7. LEVODOPA AND BENSERAZIDE HYDROCHLORIDE [Concomitant]
     Active Substance: BENSERAZIDE HYDROCHLORIDE\LEVODOPA
     Dosage: NONRETARD FORMULATION OF 125 MG TID
  8. AGOMELATINE [Concomitant]
     Active Substance: AGOMELATINE
     Indication: INSOMNIA
  9. LEVODOPA AND BENSERAZIDE HYDROCHLORIDE [Concomitant]
     Active Substance: BENSERAZIDE HYDROCHLORIDE\LEVODOPA
     Indication: PARKINSON^S DISEASE
     Dosage: RETARD FORMULATION UNK

REACTIONS (1)
  - Off label use [Recovered/Resolved]
